FAERS Safety Report 16889861 (Version 1)
Quarter: 2019Q4

REPORT INFORMATION
  Report Type: Spontaneous
  Country: US (occurrence: US)
  Receive Date: 20191004
  Receipt Date: 20191004
  Transmission Date: 20200122
  Serious: Yes (Life-Threatening, Hospitalization)
  Sender: FDA-Public Use
  Company Number: None

PATIENT
  Age: 50 Year
  Sex: Female
  Weight: 81 kg

DRUGS (11)
  1. CEFTRIAXONE. [Suspect]
     Active Substance: CEFTRIAXONE
     Indication: SKIN INFECTION
     Route: 040
     Dates: start: 20190908, end: 20190908
  2. CEFTRIAXONE. [Suspect]
     Active Substance: CEFTRIAXONE
     Indication: SOFT TISSUE INFECTION
     Route: 040
     Dates: start: 20190908, end: 20190908
  3. PEPCID [Concomitant]
     Active Substance: FAMOTIDINE
  4. ZOSYN [Concomitant]
     Active Substance: PIPERACILLIN SODIUM\TAZOBACTAM SODIUM
  5. INSULIN GLARGINE [Concomitant]
     Active Substance: INSULIN GLARGINE
  6. VANCOMYCIN [Concomitant]
     Active Substance: VANCOMYCIN
  7. FLUCONAZOLE. [Concomitant]
     Active Substance: FLUCONAZOLE
  8. LINEZOLID. [Concomitant]
     Active Substance: LINEZOLID
  9. ZOLOFT [Concomitant]
     Active Substance: SERTRALINE HYDROCHLORIDE
  10. INSULIN ASPART [Concomitant]
     Active Substance: INSULIN ASPART
  11. PANTOPRAZOLE [Concomitant]
     Active Substance: PANTOPRAZOLE

REACTIONS (3)
  - Anaphylactic reaction [None]
  - Hypoxia [None]
  - Respiratory arrest [None]

NARRATIVE: CASE EVENT DATE: 20190908
